FAERS Safety Report 21649417 (Version 2)
Quarter: 2022Q4

REPORT INFORMATION
  Report Type: Spontaneous
  Country: US (occurrence: US)
  Receive Date: 20221128
  Receipt Date: 20221227
  Transmission Date: 20230113
  Serious: Yes (Other)
  Sender: FDA-Public Use
  Company Number: US-Calliditas-2022CAL00528

PATIENT
  Age: 63 Year
  Sex: Female
  Weight: 65 kg

DRUGS (8)
  1. TARPEYO [Suspect]
     Active Substance: BUDESONIDE
     Indication: IgA nephropathy
     Dosage: 16 MG (4 MG CAPSULES) ONCE DAILY
     Route: 048
     Dates: start: 202211, end: 20221110
  2. LOKELMA [Concomitant]
     Active Substance: SODIUM ZIRCONIUM CYCLOSILICATE
  3. ALISKIREN [Concomitant]
     Active Substance: ALISKIREN
  4. CELLCEPT [Concomitant]
     Active Substance: MYCOPHENOLATE MOFETIL
  5. PREDNISONE [Concomitant]
     Active Substance: PREDNISONE
  6. METOPROLOL SUCCINATE [Concomitant]
     Active Substance: METOPROLOL SUCCINATE
  7. SYNTHROID [Concomitant]
     Active Substance: LEVOTHYROXINE SODIUM
  8. CYTOMEL [Concomitant]
     Active Substance: LIOTHYRONINE SODIUM

REACTIONS (13)
  - Hypertensive urgency [Not Recovered/Not Resolved]
  - Constipation [Recovered/Resolved]
  - Nasal dryness [Recovered/Resolved]
  - Dysphonia [Recovered/Resolved]
  - Asthenia [Recovered/Resolved]
  - Nervousness [Recovered/Resolved]
  - Gastrointestinal disorder [Recovered/Resolved]
  - Dizziness [Recovered/Resolved]
  - Anxiety [Recovered/Resolved]
  - Stress [Recovered/Resolved]
  - Feeling abnormal [Recovered/Resolved]
  - Gastrointestinal hypomotility [Recovered/Resolved]
  - Paranasal sinus hyposecretion [Recovered/Resolved]

NARRATIVE: CASE EVENT DATE: 20221108
